FAERS Safety Report 24546417 (Version 6)
Quarter: 2024Q4

REPORT INFORMATION
  Report Type: Spontaneous
  Country: US (occurrence: US)
  Receive Date: 20241024
  Receipt Date: 20241223
  Transmission Date: 20250115
  Serious: Yes (Hospitalization)
  Sender: KARYOPHARM THERAPEUTICS
  Company Number: US-KARYOPHARM-2024KPT001690

PATIENT

DRUGS (9)
  1. XPOVIO [Suspect]
     Active Substance: SELINEXOR
     Indication: Plasma cell myeloma in remission
     Dosage: 80 MG, 2X/WEEK
     Route: 048
     Dates: start: 20241014
  2. ACYCLOVIR [Concomitant]
     Active Substance: ACYCLOVIR
  3. DEXAMETHASONE [Concomitant]
     Active Substance: DEXAMETHASONE
  4. ELIQUIS [Concomitant]
     Active Substance: APIXABAN
  5. FUROSEMIDE [Concomitant]
     Active Substance: FUROSEMIDE
  6. LOSARTAN POTASSIUM [Concomitant]
     Active Substance: LOSARTAN POTASSIUM
  7. ONDANSETRON [Concomitant]
     Active Substance: ONDANSETRON
  8. TADALAFIL [Concomitant]
     Active Substance: TADALAFIL
  9. TESSALON [Concomitant]
     Active Substance: BENZONATATE

REACTIONS (12)
  - Hypotension [Not Recovered/Not Resolved]
  - Infection [Not Recovered/Not Resolved]
  - Blood potassium decreased [Unknown]
  - Pyrexia [Unknown]
  - Dyspnoea [Not Recovered/Not Resolved]
  - Pollakiuria [Unknown]
  - Oedema [Unknown]
  - Ageusia [Unknown]
  - Diarrhoea [Not Recovered/Not Resolved]
  - Weight decreased [Unknown]
  - Nausea [Unknown]
  - Product dose omission issue [Unknown]

NARRATIVE: CASE EVENT DATE: 20240101
